FAERS Safety Report 4880177-4 (Version None)
Quarter: 2006Q1

REPORT INFORMATION
  Report Type: 
  Country: None (occurrence: None)
  Receive Date: 20060111
  Receipt Date: 20051230
  Transmission Date: 20060701
  Serious: Yes (Other)
  Sender: FDA-Public Use
  Company Number: 2006001127

PATIENT
  Sex: Female

DRUGS (4)
  1. LIPITOR [Suspect]
     Indication: BLOOD CHOLESTEROL INCREASED
     Dosage: 10 MG (10 MG, 1 IN 1 D)
  2. FOSAMAX [Concomitant]
  3. PRILOSEC [Concomitant]
  4. CALCIUM CARBONATE [Concomitant]

REACTIONS (3)
  - DYSPHAGIA [None]
  - JAW OPERATION [None]
  - WRONG TECHNIQUE IN DRUG USAGE PROCESS [None]
